FAERS Safety Report 14078445 (Version 1)
Quarter: 2017Q4

REPORT INFORMATION
  Report Type: Spontaneous
  Country: US (occurrence: US)
  Receive Date: 20171011
  Receipt Date: 20171011
  Transmission Date: 20180321
  Serious: Yes (Other)
  Sender: FDA-Public Use
  Company Number: None

PATIENT
  Age: 69 Year
  Sex: Female
  Weight: 63 kg

DRUGS (8)
  1. VITAMIN D3 [Concomitant]
     Active Substance: CHOLECALCIFEROL
  2. VITAMIN C [Concomitant]
     Active Substance: ASCORBIC ACID
  3. B6 [Concomitant]
     Active Substance: PYRIDOXINE HYDROCHLORIDE
  4. VITAMIN B12 [Concomitant]
     Active Substance: CYANOCOBALAMIN
  5. MAGNESIUM [Concomitant]
     Active Substance: MAGNESIUM
  6. CERVA SUNSCREEN SPF 30 FACE LOTION WITH INVISIBLE ZINC [Suspect]
     Active Substance: TITANIUM DIOXIDE\ZINC OXIDE
     Indication: PROPHYLAXIS AGAINST SOLAR RADIATION
     Dosage: ?          OTHER STRENGTH:.25 OZ.;QUANTITY:1 .25 OZ;?
     Route: 061
     Dates: start: 20170909, end: 20170910
  7. CALCIUM [Concomitant]
     Active Substance: CALCIUM
  8. FISH OIL [Concomitant]
     Active Substance: FISH OIL

REACTIONS (4)
  - Skin exfoliation [None]
  - Urticaria [None]
  - Swelling [None]
  - Dry skin [None]

NARRATIVE: CASE EVENT DATE: 20170910
